FAERS Safety Report 4435554-2 (Version None)
Quarter: 2004Q3

REPORT INFORMATION
  Report Type: 
  Country: None (occurrence: None)
  Receive Date: 20040826
  Receipt Date: 20040813
  Transmission Date: 20050211
  Serious: Yes (Hospitalization)
  Sender: FDA-Public Use
  Company Number: 2004-DE-04375GD

PATIENT
  Age: 39 Year
  Sex: Male

DRUGS (5)
  1. NEVIRAPINE (NEVIRAPINE) [Suspect]
     Indication: HIV INFECTION
     Dosage: 400 MG TWICE DAILY
  2. SERTRALINE HYDROCHLORIDE [Suspect]
     Indication: DEPRESSION
  3. DIAZEPAM [Suspect]
     Indication: DEPRESSION
  4. LITHIUM CARBONATE [Suspect]
     Indication: DEPRESSION
  5. ZIDOVUDINE + LAMIVUDINE (ZIDOVUDINE W/LAMIVUDINE) [Suspect]
     Indication: HIV INFECTION
     Dosage: 2 X 1/DAY

REACTIONS (11)
  - BLASTOCYSTIS INFECTION [None]
  - CYTOMEGALOVIRUS ANTIBODY POSITIVE [None]
  - ECONOMIC PROBLEM [None]
  - EPSTEIN-BARR VIRUS ANTIGEN POSITIVE [None]
  - GASTROENTERITIS CRYPTOSPORIDIAL [None]
  - HEPATITIS TOXIC [None]
  - HYPERAEMIA [None]
  - MARKEDLY REDUCED DIETARY INTAKE [None]
  - SEBORRHOEIC DERMATITIS [None]
  - TREATMENT NONCOMPLIANCE [None]
  - VIRAL LOAD DECREASED [None]
